FAERS Safety Report 18241760 (Version 1)
Quarter: 2020Q3

REPORT INFORMATION
  Report Type: Spontaneous
  Country: FR (occurrence: FR)
  Receive Date: 20200908
  Receipt Date: 20200908
  Transmission Date: 20201103
  Serious: Yes (Death)
  Sender: FDA-Public Use
  Company Number: FR-ACCORD-199777

PATIENT
  Age: 87 Year
  Sex: Female
  Weight: 66 kg

DRUGS (13)
  1. GEMCITABINE. [Suspect]
     Active Substance: GEMCITABINE
     Indication: ADULT T-CELL LYMPHOMA/LEUKAEMIA
     Dosage: STRENGTH: 2 G
     Route: 041
     Dates: start: 20200723, end: 20200723
  2. BROMAZEPAM [Concomitant]
     Active Substance: BROMAZEPAM
  3. MOVICOL [Concomitant]
     Active Substance: POLYETHYLENE GLYCOL 3350\POTASSIUM CHLORIDE\SODIUM BICARBONATE\SODIUM CHLORIDE
  4. ESCITALOPRAM [Concomitant]
     Active Substance: ESCITALOPRAM OXALATE
  5. REPAGLINIDE. [Concomitant]
     Active Substance: REPAGLINIDE
  6. OXALIPLATINE ACCORD [Suspect]
     Active Substance: OXALIPLATIN
     Indication: ADULT T-CELL LYMPHOMA/LEUKAEMIA
     Dosage: STRENGTH: 5 MG/ML
     Route: 041
     Dates: start: 20200723, end: 20200723
  7. KARDEGIC [Concomitant]
     Active Substance: ASPIRIN DL-LYSINE
  8. TRUXIMA [Suspect]
     Active Substance: RITUXIMAB-ABBS
     Indication: ADULT T-CELL LYMPHOMA/LEUKAEMIA
     Dosage: STRENGTH: 500 MG
     Route: 041
     Dates: start: 20200722, end: 20200722
  9. SERESTA [Concomitant]
     Active Substance: OXAZEPAM
  10. SITAGLIPTIN/SITAGLIPTIN PHOSPHATE [Concomitant]
     Active Substance: SITAGLIPTIN PHOSPHATE
  11. AVLOCARDYL [Concomitant]
     Active Substance: PROPRANOLOL HYDROCHLORIDE
  12. LEVOTHYROX [Concomitant]
     Active Substance: LEVOTHYROXINE
  13. SPASFON [Concomitant]

REACTIONS (5)
  - Agitation [Fatal]
  - Transaminases increased [Fatal]
  - Acute respiratory failure [Fatal]
  - Shock [Fatal]
  - Pulmonary embolism [Fatal]

NARRATIVE: CASE EVENT DATE: 20200723
